FAERS Safety Report 6887644-2 (Version None)
Quarter: 2010Q3

REPORT INFORMATION
  Report Type: 
  Country: None (occurrence: None)
  Receive Date: 20100730
  Receipt Date: 20100628
  Transmission Date: 20110219
  Serious: No
  Sender: FDA-Public Use
  Company Number: PR-BAYER-201027034NA

PATIENT
  Age: 18 Year
  Sex: Female

DRUGS (1)
  1. MAGNEVIST [Suspect]
     Indication: NUCLEAR MAGNETIC RESONANCE IMAGING BRAIN
     Dosage: AS USED: 11 ML
     Route: 042
     Dates: start: 20100609, end: 20100609

REACTIONS (2)
  - NAUSEA [None]
  - VOMITING [None]
